FAERS Safety Report 6696480-1 (Version None)
Quarter: 2010Q2

REPORT INFORMATION
  Report Type: 
  Country: None (occurrence: None)
  Receive Date: 20100426
  Receipt Date: 20100421
  Transmission Date: 20101027
  Serious: Yes (Hospitalization)
  Sender: FDA-Public Use
  Company Number: DK-ROCHE-698698

PATIENT
  Sex: Female

DRUGS (2)
  1. ROACTEMRA [Suspect]
     Dosage: FREQUENCY : Q4WK
     Route: 042
     Dates: start: 20091110, end: 20091116
  2. METHOTREXATE [Concomitant]
     Dosage: DOSE UNKNOWN
     Route: 048
     Dates: start: 20051107, end: 20091111

REACTIONS (3)
  - ACUTE MYOCARDIAL INFARCTION [None]
  - FEMORAL NECK FRACTURE [None]
  - TRANSIENT ISCHAEMIC ATTACK [None]
